FAERS Safety Report 6684949-5 (Version None)
Quarter: 2010Q2

REPORT INFORMATION
  Report Type: 
  Country: None (occurrence: None)
  Receive Date: 20100416
  Receipt Date: 20100408
  Transmission Date: 20101027
  Serious: Yes (Other)
  Sender: FDA-Public Use
  Company Number: US-AMGEN-QUU404413

PATIENT
  Sex: Male

DRUGS (2)
  1. NPLATE [Suspect]
     Indication: IDIOPATHIC THROMBOCYTOPENIC PURPURA
     Dates: start: 20090827, end: 20100212
  2. IMMU-G [Concomitant]
     Dates: start: 20090215

REACTIONS (3)
  - EMBOLISM [None]
  - THERAPEUTIC RESPONSE DECREASED [None]
  - THROMBOSIS [None]
